FAERS Safety Report 4821487-6 (Version None)
Quarter: 2005Q4

REPORT INFORMATION
  Report Type: 
  Country: None (occurrence: None)
  Receive Date: 20051107
  Receipt Date: 20051102
  Transmission Date: 20060501
  Serious: Yes (Other)
  Sender: FDA-Public Use
  Company Number: TRC-9701

PATIENT
  Sex: Male
  Weight: 71.1 kg

DRUGS (1)
  1. 506U78 [Suspect]
     Dosage: 1.5GM2 CYCLIC
     Route: 042
     Dates: start: 20051011

REACTIONS (3)
  - ASPARTATE AMINOTRANSFERASE INCREASED [None]
  - BLOOD CREATINE PHOSPHOKINASE INCREASED [None]
  - MYALGIA [None]
